FAERS Safety Report 4269767-X (Version None)
Quarter: 2004Q1

REPORT INFORMATION
  Report Type: 
  Country: None (occurrence: None)
  Receive Date: 20040113
  Receipt Date: 20031114
  Transmission Date: 20041129
  Serious: Yes (Hospitalization)
  Sender: FDA-Public Use
  Company Number: WAES 0311GBR00136

PATIENT
  Age: 68 Year
  Sex: Male

DRUGS (3)
  1. FOSAMAX [Suspect]
     Route: 048
     Dates: end: 20030101
  2. FOSAMAX [Suspect]
     Route: 048
     Dates: start: 20030101
  3. PREDNISOLONE [Concomitant]

REACTIONS (2)
  - DYSPHAGIA [None]
  - PHARYNGITIS [None]
